FAERS Safety Report 10423812 (Version 2)
Quarter: 2014Q3

REPORT INFORMATION
  Report Type: Report from Study
  Country: US (occurrence: US)
  Receive Date: 20140902
  Receipt Date: 20140924
  Transmission Date: 20150326
  Serious: Yes (Death, Hospitalization, Other)
  Sender: FDA-Public Use
  Company Number: US-ASTRAZENECA-2014SE64663

PATIENT
  Age: 781 Month
  Sex: Male

DRUGS (6)
  1. CLARITIN [Concomitant]
     Active Substance: LORATADINE
  2. METOPROLOL TARTRATE. [Suspect]
     Active Substance: METOPROLOL TARTRATE
     Indication: PRODUCT USED FOR UNKNOWN INDICATION
     Route: 048
  3. LIPITOR [Concomitant]
     Active Substance: ATORVASTATIN CALCIUM
     Route: 048
  4. TYLENOL [Concomitant]
     Active Substance: ACETAMINOPHEN
  5. BRILINTA [Suspect]
     Active Substance: TICAGRELOR
     Indication: ACUTE CORONARY SYNDROME
     Route: 048
  6. ASPIRIN. [Concomitant]
     Active Substance: ASPIRIN
     Route: 048

REACTIONS (18)
  - Nausea [Unknown]
  - Dyspnoea [Fatal]
  - Coronary artery occlusion [Unknown]
  - Renal failure acute [Recovered/Resolved]
  - Hypokinesia [Unknown]
  - Transaminases increased [Recovered/Resolved]
  - Chest pain [Unknown]
  - Myocardial infarction [Unknown]
  - Postinfarction angina [Unknown]
  - Electrocardiogram ST segment elevation [Unknown]
  - Leukocytosis [Unknown]
  - Abdominal pain [Unknown]
  - Pyrexia [Recovered/Resolved]
  - Blood pressure diastolic increased [Unknown]
  - Upper respiratory tract infection [Unknown]
  - Hyperlipidaemia [Unknown]
  - Aneurysm [Unknown]
  - Drug dose omission [Fatal]

NARRATIVE: CASE EVENT DATE: 201403
